FAERS Safety Report 18637000 (Version 2)
Quarter: 2020Q4

REPORT INFORMATION
  Report Type: Spontaneous
  Country: HU (occurrence: HU)
  Receive Date: 20201219
  Receipt Date: 20201231
  Transmission Date: 20210114
  Serious: Yes (Hospitalization, Other)
  Sender: FDA-Public Use
  Company Number: HU-LUPIN PHARMACEUTICALS INC.-2020-10382

PATIENT
  Age: 19 Year
  Sex: Female

DRUGS (2)
  1. VALPROATE [Interacting]
     Active Substance: VALPROIC ACID
     Indication: SCHIZOPHRENIA
     Dosage: UNK
     Route: 065
  2. LAMOTRIGINE. [Suspect]
     Active Substance: LAMOTRIGINE
     Indication: SCHIZOPHRENIA
     Dosage: 50 MILLIGRAM, BID
     Route: 065

REACTIONS (14)
  - Toxic epidermal necrolysis [Recovering/Resolving]
  - Diffuse alopecia [Not Recovered/Not Resolved]
  - Blepharitis [Unknown]
  - Bleeding time prolonged [Not Recovered/Not Resolved]
  - Scar [Not Recovered/Not Resolved]
  - Drug interaction [Unknown]
  - Systemic inflammatory response syndrome [Not Recovered/Not Resolved]
  - Nail disorder [Not Recovered/Not Resolved]
  - Hepatic enzyme increased [Not Recovered/Not Resolved]
  - Confusional state [Not Recovered/Not Resolved]
  - Hypersensitivity [Recovering/Resolving]
  - Pancytopenia [Unknown]
  - Nikolsky^s sign [Recovering/Resolving]
  - Pigmentation disorder [Not Recovered/Not Resolved]
